FAERS Safety Report 5781113-9 (Version None)
Quarter: 2008Q2

REPORT INFORMATION
  Report Type: 
  Country: None (occurrence: None)
  Receive Date: 20080620
  Receipt Date: 20080610
  Transmission Date: 20081010
  Serious: Yes (Hospitalization)
  Sender: FDA-Public Use
  Company Number: JP-PFIZER INC-2008051548

PATIENT
  Age: 80 Year
  Sex: Male

DRUGS (4)
  1. LIPITOR [Suspect]
     Route: 048
  2. MICARDIS [Suspect]
     Dosage: DAILY DOSE:80MG-FREQ:DAILY
     Route: 048
  3. CONIEL [Suspect]
     Dosage: DAILY DOSE:8MG-FREQ:DAILY
     Route: 048
  4. ZANTAC [Suspect]
     Dosage: DAILY DOSE:150MG-FREQ:DAILY
     Route: 048

REACTIONS (1)
  - EOSINOPHIL COUNT INCREASED [None]
